FAERS Safety Report 15011883 (Version 1)
Quarter: 2018Q2

REPORT INFORMATION
  Report Type: Spontaneous
  Country: US (occurrence: US)
  Receive Date: 20180522
  Receipt Date: 20180522
  Transmission Date: 20180711
  Serious: Yes (Hospitalization)
  Sender: FDA-Public Use
  Company Number: None

PATIENT
  Age: 69 Year
  Sex: Male
  Weight: 82.42 kg

DRUGS (18)
  1. NEXIUM [Concomitant]
     Active Substance: ESOMEPRAZOLE MAGNESIUM
  2. SINEQUAN [Concomitant]
     Active Substance: DOXEPIN HYDROCHLORIDE
  3. NICODERM CQ [Concomitant]
     Active Substance: NICOTINE
  4. ROXICODONE [Concomitant]
     Active Substance: OXYCODONE HYDROCHLORIDE
  5. MELATONIN [Concomitant]
     Active Substance: MELATONIN
  6. NORVASC [Concomitant]
     Active Substance: AMLODIPINE BESYLATE
  7. ALBUTEROL. [Concomitant]
     Active Substance: ALBUTEROL
  8. SENOKOT [Concomitant]
     Active Substance: SENNOSIDES
  9. CEFEPIME [Concomitant]
     Active Substance: CEFEPIME HYDROCHLORIDE
  10. HARVONI [Suspect]
     Active Substance: LEDIPASVIR\SOFOSBUVIR
     Indication: HEPATITIS C
     Route: 048
     Dates: start: 20170429, end: 20170722
  11. GENVOYA [Concomitant]
     Active Substance: COBICISTAT\ELVITEGRAVIR\EMTRICITABINE\TENOFOVIR ALAFENAMIDE FUMARATE
  12. LIDODERM [Concomitant]
     Active Substance: LIDOCAINE
  13. OMEPRAZOLE. [Concomitant]
     Active Substance: OMEPRAZOLE
  14. NEURONTIN [Concomitant]
     Active Substance: GABAPENTIN
  15. THIAMINE. [Concomitant]
     Active Substance: THIAMINE
  16. COGENTIN [Concomitant]
     Active Substance: BENZTROPINE MESYLATE
  17. ZYPREXA [Concomitant]
     Active Substance: OLANZAPINE
  18. TAMSULOSIN [Concomitant]
     Active Substance: TAMSULOSIN

REACTIONS (7)
  - Acute kidney injury [None]
  - Urinary tract obstruction [None]
  - Unresponsive to stimuli [None]
  - Urinary retention [None]
  - Asterixis [None]
  - Depressed level of consciousness [None]
  - Myoclonus [None]

NARRATIVE: CASE EVENT DATE: 20170524
